FAERS Safety Report 13580419 (Version 1)
Quarter: 2017Q2

REPORT INFORMATION
  Report Type: Spontaneous
  Country: GB (occurrence: GB)
  Receive Date: 20170525
  Receipt Date: 20170525
  Transmission Date: 20170830
  Serious: Yes (Disabling, Other)
  Sender: FDA-Public Use
  Company Number: US-ASTRAZENECA-2017SE49596

PATIENT
  Age: 28 Year
  Sex: Male
  Weight: 123 kg

DRUGS (12)
  1. ATARAX [Concomitant]
     Active Substance: HYDROXYZINE HYDROCHLORIDE
  2. CETIRIZINE HYDROCHLORIDE. [Concomitant]
     Active Substance: CETIRIZINE HYDROCHLORIDE
  3. PIRITON [Concomitant]
     Active Substance: CHLORPHENIRAMINE MALEATE
  4. NEXIUM CONTROL [Suspect]
     Active Substance: ESOMEPRAZOLE MAGNESIUM
     Indication: GASTROOESOPHAGEAL REFLUX DISEASE
     Dosage: 20.0MG UNKNOWN
     Route: 048
  5. DESLORATADINE. [Concomitant]
     Active Substance: DESLORATADINE
  6. FLUTICASONE. [Concomitant]
     Active Substance: FLUTICASONE
  7. COLOFAC [Concomitant]
     Active Substance: MEBEVERINE HYDROCHLORIDE
  8. LINSEED OIL [Concomitant]
     Active Substance: LINSEED OIL
  9. EFEXOR XL [Concomitant]
     Active Substance: VENLAFAXINE HYDROCHLORIDE
  10. NORTRIPTYLINE HYDROCHLORIDE. [Concomitant]
     Active Substance: NORTRIPTYLINE HYDROCHLORIDE
  11. PREDNISONE. [Concomitant]
     Active Substance: PREDNISONE
  12. ALOE VERA [Concomitant]
     Active Substance: ALOE VERA LEAF

REACTIONS (2)
  - Pruritus [Unknown]
  - Drug ineffective for unapproved indication [Unknown]
